FAERS Safety Report 11932735 (Version 3)
Quarter: 2016Q1

REPORT INFORMATION
  Report Type: Spontaneous
  Country: DK (occurrence: DK)
  Receive Date: 20160120
  Receipt Date: 20160203
  Transmission Date: 20160526
  Serious: Yes (Death, Other)
  Sender: FDA-Public Use
  Company Number: DK-PFIZER INC-2015395026

PATIENT
  Age: 8 Year
  Sex: Female

DRUGS (1)
  1. VIAGRA [Suspect]
     Active Substance: SILDENAFIL CITRATE
     Indication: PULMONARY HYPERTENSION
     Dosage: UNK
     Dates: start: 201511, end: 201512

REACTIONS (2)
  - Product use issue [Recovered/Resolved]
  - Circulatory collapse [Fatal]

NARRATIVE: CASE EVENT DATE: 201511
